FAERS Safety Report 5957039-4 (Version None)
Quarter: 2008Q4

REPORT INFORMATION
  Report Type: 
  Country: None (occurrence: None)
  Receive Date: 20081118
  Receipt Date: 20081003
  Transmission Date: 20090506
  Serious: No
  Sender: FDA-Public Use
  Company Number: A0750462A

PATIENT
  Age: 75 Year
  Sex: Male

DRUGS (3)
  1. COREG CR [Suspect]
     Dosage: 10MG PER DAY
     Route: 048
  2. CRESTOR [Concomitant]
  3. ASPIRIN [Concomitant]

REACTIONS (2)
  - DYSPNOEA [None]
  - FATIGUE [None]
